FAERS Safety Report 5375222-6 (Version None)
Quarter: 2007Q2

REPORT INFORMATION
  Report Type: 
  Country: None (occurrence: None)
  Receive Date: 20070629
  Receipt Date: 20070222
  Transmission Date: 20071010
  Serious: Yes (Other)
  Sender: FDA-Public Use
  Company Number: US-ASTRAZENECA-2007UW03498

PATIENT
  Age: 52 Year
  Sex: Female
  Weight: 72.6 kg

DRUGS (1)
  1. NOLVADEX [Suspect]
     Route: 048
     Dates: start: 20000101

REACTIONS (1)
  - SARCOMA UTERUS [None]
